FAERS Safety Report 9163114 (Version 1)
Quarter: 2013Q1

REPORT INFORMATION
  Report Type: Report from Study
  Country: CA (occurrence: CA)
  Receive Date: 20130314
  Receipt Date: 20130314
  Transmission Date: 20140127
  Serious: Yes (Other)
  Sender: FDA-Public Use
  Company Number: CA-ROCHE-1147932

PATIENT
  Age: 50 Year
  Sex: Female
  Weight: 80 kg

DRUGS (3)
  1. ACTEMRA [Suspect]
     Indication: RHEUMATOID ARTHRITIS
     Route: 042
     Dates: start: 20110401
  2. OXYCONTIN [Concomitant]
  3. PERCOCET [Concomitant]

REACTIONS (3)
  - Foot operation [Recovering/Resolving]
  - Musculoskeletal disorder [Unknown]
  - Nasopharyngitis [Recovered/Resolved]
